FAERS Safety Report 25766985 (Version 1)
Quarter: 2025Q3

REPORT INFORMATION
  Report Type: Spontaneous
  Country: US (occurrence: None)
  Receive Date: 20250904
  Receipt Date: 20250904
  Transmission Date: 20251021
  Serious: Yes (Hospitalization)
  Sender: FDA-CTU
  Company Number: None

PATIENT
  Age: 23 Year
  Sex: Female
  Weight: 49.5 kg

DRUGS (6)
  1. LEXAPRO [Suspect]
     Active Substance: ESCITALOPRAM OXALATE
     Indication: Depression
     Route: 048
  2. LAMICTAL [Concomitant]
     Active Substance: LAMOTRIGINE
  3. AJOVY [Concomitant]
     Active Substance: FREMANEZUMAB-VFRM
  4. BUSPAR [Concomitant]
     Active Substance: BUSPIRONE HYDROCHLORIDE
  5. WELLBUTRIN [Concomitant]
     Active Substance: BUPROPION HYDROCHLORIDE
  6. LEXAPRO [Concomitant]
     Active Substance: ESCITALOPRAM OXALATE

REACTIONS (6)
  - Nausea [None]
  - Headache [None]
  - Withdrawal syndrome [None]
  - Migraine [None]
  - Dizziness [None]
  - Brain fog [None]

NARRATIVE: CASE EVENT DATE: 20240629
